FAERS Safety Report 18549539 (Version 1)
Quarter: 2020Q4

REPORT INFORMATION
  Report Type: Other
  Country: CA (occurrence: CA)
  Receive Date: 20201126
  Receipt Date: 20201126
  Transmission Date: 20210114
  Serious: Yes (Death, Hospitalization, Other)
  Sender: FDA-Public Use
  Company Number: CA-APOTEX-2017AP010793

PATIENT
  Age: 71 Year
  Sex: Female
  Weight: 82 kg

DRUGS (10)
  1. CARBOPLATIN. [Suspect]
     Active Substance: CARBOPLATIN
     Indication: MALIGNANT PERITONEAL NEOPLASM
     Route: 065
  2. AVASTIN [Suspect]
     Active Substance: BEVACIZUMAB
     Dosage: UNK
     Route: 042
  3. GEMCITABINE. [Suspect]
     Active Substance: GEMCITABINE
     Indication: MALIGNANT PERITONEAL NEOPLASM
     Route: 065
  4. BEVACIZUMAB. [Suspect]
     Active Substance: BEVACIZUMAB
     Indication: MALIGNANT PERITONEAL NEOPLASM
     Dosage: 1200 MILLIGRAM
     Route: 042
  5. DEXAMETHASONE. [Concomitant]
     Active Substance: DEXAMETHASONE
     Indication: PRODUCT USED FOR UNKNOWN INDICATION
     Route: 065
  6. AVASTIN [Suspect]
     Active Substance: BEVACIZUMAB
     Indication: MALIGNANT PERITONEAL NEOPLASM
     Dosage: 1000 MILLIGRAM
     Route: 042
  7. AVASTIN [Suspect]
     Active Substance: BEVACIZUMAB
     Dosage: 1200 MILLIGRAM, 1 EVERY 3 WEEKS
     Route: 042
  8. ONDANSETRON [Concomitant]
     Active Substance: ONDANSETRON
     Indication: PRODUCT USED FOR UNKNOWN INDICATION
     Route: 065
  9. PROCHLORPERAZINE. [Concomitant]
     Active Substance: PROCHLORPERAZINE
     Indication: PRODUCT USED FOR UNKNOWN INDICATION
     Route: 065
  10. ERGOCALCIFEROL. [Concomitant]
     Active Substance: ERGOCALCIFEROL
     Indication: PRODUCT USED FOR UNKNOWN INDICATION
     Route: 065

REACTIONS (13)
  - Product dose omission issue [Fatal]
  - Pain [Fatal]
  - Drug ineffective [Fatal]
  - Blood count abnormal [Fatal]
  - Neutrophil count decreased [Fatal]
  - Ascites [Fatal]
  - White blood cell count decreased [Fatal]
  - Death [Fatal]
  - Off label use [Fatal]
  - Weight decreased [Fatal]
  - Neoplasm progression [Fatal]
  - Injection site phlebitis [Fatal]
  - Pleural effusion [Fatal]
